FAERS Safety Report 6754510-2 (Version None)
Quarter: 2010Q2

REPORT INFORMATION
  Report Type: 
  Country: None (occurrence: None)
  Receive Date: 20100603
  Receipt Date: 20100524
  Transmission Date: 20101027
  Serious: Yes (Other)
  Sender: FDA-Public Use
  Company Number: BR-PFIZER INC-2010025951

PATIENT
  Age: 60 Year
  Sex: Female
  Weight: 53 kg

DRUGS (11)
  1. CHAMPIX [Suspect]
     Indication: TOBACCO USER
     Dosage: UNK
     Route: 048
     Dates: start: 20100222
  2. CHAMPIX [Suspect]
     Dosage: 1 MG, 2X/DAY
     Route: 048
  3. BUFFERIN [Concomitant]
     Dosage: UNK
  4. FLUOXETINE [Concomitant]
     Indication: DEPRESSION
     Dosage: UNK
  5. ATROVENT [Concomitant]
     Indication: BRONCHITIS
     Dosage: UNK
  6. ACETYLCYSTEINE [Concomitant]
     Indication: BRONCHITIS
     Dosage: UNK
  7. CLONAZEPAM [Concomitant]
     Indication: DEPRESSION
     Dosage: UNK
  8. DRAMIN /BRA/ [Concomitant]
     Dosage: UNK
  9. FLUTICASONE PROPIONATE [Concomitant]
     Dosage: UNK
  10. CALCIUM [Concomitant]
     Indication: OSTEOPENIA
     Dosage: UNK
  11. LOVAZA [Concomitant]
     Dosage: UNK

REACTIONS (5)
  - AGITATION [None]
  - FORMICATION [None]
  - HYPERSENSITIVITY [None]
  - URINARY INCONTINENCE [None]
  - URTICARIA [None]
